FAERS Safety Report 8413124-9 (Version None)
Quarter: 2012Q2

REPORT INFORMATION
  Report Type: 
  Country: None (occurrence: None)
  Receive Date: 20120323
  Receipt Date: 20110914
  Transmission Date: 20120825
  Serious: Yes (Hospitalization)
  Sender: FDA-Public Use
  Company Number: 163-21880-11022570

PATIENT
  Age: 58 Year
  Sex: Male

DRUGS (10)
  1. ENALAPRIL/HCTZ (VASERETIC) (UNKNOWN) [Concomitant]
  2. MORPHINE [Concomitant]
  3. REVLIMID [Suspect]
     Indication: MULTIPLE MYELOMA
     Dosage: 25 MG, FOR 21 DAYS, PO
     Route: 048
     Dates: start: 20101119
  4. STOOL SOFTENER (DOCUSATE SODIUM) (UNKNOWN) [Concomitant]
  5. ZOMETA [Concomitant]
  6. CETRIZINE (CETIRIZINE HYDROCHLORIDE) (UNKNOWN) [Concomitant]
  7. VERAPAMIL [Concomitant]
  8. CALCIUM (CALCIUM) (UNKNOWN) [Concomitant]
  9. ENOXAPARIN (ENOXAPARIN) (UNKNOWN) [Concomitant]
  10. MIRALAX (MACROGOL) (UNKNOWN) [Concomitant]

REACTIONS (1)
  - RASH ERYTHEMATOUS [None]
